FAERS Safety Report 4661781-5 (Version None)
Quarter: 2005Q2

REPORT INFORMATION
  Report Type: 
  Country: None (occurrence: None)
  Receive Date: 20050512
  Receipt Date: 20050512
  Transmission Date: 20051028
  Serious: No
  Sender: FDA-Public Use
  Company Number: None

PATIENT
  Age: 22 Year
  Sex: Male
  Weight: 80.7403 kg

DRUGS (2)
  1. NEURONTIN [Suspect]
     Dosage: 400 MG TID
  2. NEURONTIN [Suspect]
     Dosage: 800 MG TID

REACTIONS (2)
  - ABNORMAL BEHAVIOUR [None]
  - CONVULSION [None]
